FAERS Safety Report 8006490-X (Version None)
Quarter: 2011Q4

REPORT INFORMATION
  Report Type: 
  Country: None (occurrence: None)
  Receive Date: 20111226
  Receipt Date: 20111214
  Transmission Date: 20120403
  Serious: Yes (Other)
  Sender: FDA-Public Use
  Company Number: PHHY2011IL111028

PATIENT
  Sex: Male

DRUGS (4)
  1. ANGIOTENSIN II ANTAGONISTS [Suspect]
     Dosage: UNK UKN, UNK
  2. TACROLIMUS [Concomitant]
     Dosage: UNK UKN, UNK
  3. ACE INHIBITOR NOS [Suspect]
     Dosage: UNK UKN, UNK
  4. CYCLOSPORINE [Suspect]
     Indication: NEPHROTIC SYNDROME
     Dosage: UNK UKN, UNK

REACTIONS (11)
  - DRUG INEFFECTIVE [None]
  - RENAL FAILURE CHRONIC [None]
  - RENAL IMPAIRMENT [None]
  - PROTEINURIA [None]
  - BLOOD CREATININE INCREASED [None]
  - HYPOTHYROIDISM [None]
  - BLOOD THYROID STIMULATING HORMONE INCREASED [None]
  - THYROXINE FREE DECREASED [None]
  - FOCAL SEGMENTAL GLOMERULOSCLEROSIS [None]
  - BLOOD ALBUMIN INCREASED [None]
  - PROTEIN URINE PRESENT [None]
